FAERS Safety Report 4304820-3 (Version None)
Quarter: 2004Q1

REPORT INFORMATION
  Report Type: 
  Country: None (occurrence: None)
  Receive Date: 20040223
  Receipt Date: 20030828
  Transmission Date: 20041129
  Serious: Yes (Hospitalization)
  Sender: FDA-Public Use
  Company Number: TAP2003Q02014

PATIENT
  Age: 75 Year
  Sex: Male
  Weight: 94.3482 kg

DRUGS (8)
  1. LUPRON DEPOT-3 [Suspect]
     Indication: PROSTATE CANCER
     Dosage: 22.5 MG, 1 IN 3 M, INTRAMUSCULAR, SEVERAL YEARS
     Route: 030
  2. GLUCOPHAGE [Concomitant]
  3. GLUCOTROL XL [Concomitant]
  4. CELEBREX [Concomitant]
  5. CASODEX [Concomitant]
  6. ZIAC (BISELECT) [Concomitant]
  7. DIOVAN (VALSARTAN0 [Concomitant]
  8. ALLEGRA [Concomitant]

REACTIONS (1)
  - PLEURAL EFFUSION [None]
